FAERS Safety Report 26145182 (Version 1)
Quarter: 2025Q4

REPORT INFORMATION
  Report Type: Spontaneous
  Country: US (occurrence: US)
  Receive Date: 20251211
  Receipt Date: 20251211
  Transmission Date: 20260118
  Serious: No
  Sender: ALCON
  Company Number: US-ALCON LABORATORIES-ALC2025US005315

PATIENT
  Sex: Female

DRUGS (1)
  1. ACOLTREMON [Suspect]
     Active Substance: ACOLTREMON
     Indication: Product used for unknown indication
     Dosage: UNK
     Route: 047
     Dates: start: 20250913, end: 20250928

REACTIONS (6)
  - Abnormal sensation in eye [Unknown]
  - Conjunctival discolouration [Unknown]
  - Ocular hyperaemia [Unknown]
  - Eye swelling [Unknown]
  - Adverse drug reaction [Unknown]
  - Eye pain [Unknown]
